FAERS Safety Report 19261642 (Version 4)
Quarter: 2022Q2

REPORT INFORMATION
  Report Type: Spontaneous
  Country: US (occurrence: US)
  Receive Date: 20210515
  Receipt Date: 20220513
  Transmission Date: 20220721
  Serious: Yes (Hospitalization, Other)
  Sender: FDA-Public Use
  Company Number: US-NOVARTISTESTPH-NVSC2021US102208

PATIENT
  Age: 62 Year
  Sex: Female
  Weight: 75.9 kg

DRUGS (5)
  1. PROMACTA [Suspect]
     Active Substance: ELTROMBOPAG OLAMINE
     Indication: Immune thrombocytopenia
     Dosage: 50 MG, QD
     Route: 048
     Dates: start: 20071214
  2. PROMACTA [Suspect]
     Active Substance: ELTROMBOPAG OLAMINE
     Dosage: 50 MG, QD
     Route: 048
     Dates: start: 20171214
  3. PROMACTA [Suspect]
     Active Substance: ELTROMBOPAG OLAMINE
     Dosage: 50 MG, QD
     Route: 048
     Dates: start: 202102
  4. ELIQUIS [Concomitant]
     Active Substance: APIXABAN
     Indication: Product used for unknown indication
     Dosage: UNK (STOPPED FOR 3 TO 4 WEEKS DUE TO LOW PLATELETS)
     Route: 065
  5. ELIQUIS [Concomitant]
     Active Substance: APIXABAN
     Dosage: UNK
     Route: 065

REACTIONS (12)
  - COVID-19 [Recovered/Resolved]
  - Cough [Unknown]
  - Fatigue [Unknown]
  - Platelet count decreased [Recovered/Resolved]
  - Haemolytic anaemia [Unknown]
  - Immune thrombocytopenia [Unknown]
  - Condition aggravated [Unknown]
  - Pulmonary embolism [Unknown]
  - Thrombosis [Recovered/Resolved]
  - Portal vein thrombosis [Unknown]
  - Petechiae [Unknown]
  - Oral mucosal blistering [Unknown]

NARRATIVE: CASE EVENT DATE: 20210120
